FAERS Safety Report 6248721-2 (Version None)
Quarter: 2009Q2

REPORT INFORMATION
  Report Type: 
  Country: None (occurrence: None)
  Receive Date: 20090629
  Receipt Date: 20090623
  Transmission Date: 20091009
  Serious: Yes (Hospitalization)
  Sender: FDA-Public Use
  Company Number: CH-ASTRAZENECA-2009PK01579

PATIENT
  Age: 70 Year
  Sex: Male

DRUGS (4)
  1. TENORMIN [Suspect]
     Route: 048
     Dates: end: 20090501
  2. ASPIRIN [Concomitant]
     Route: 048
  3. PLAVIX [Concomitant]
     Route: 048
  4. PRAVASTATIN [Concomitant]
     Route: 048

REACTIONS (2)
  - BRADYCARDIA [None]
  - PRESYNCOPE [None]
